FAERS Safety Report 20723423 (Version 1)
Quarter: 2022Q2

REPORT INFORMATION
  Report Type: Other
  Country: PA (occurrence: PA)
  Receive Date: 20220419
  Receipt Date: 20220419
  Transmission Date: 20220721
  Serious: Yes (Death)
  Sender: FDA-Public Use
  Company Number: PA-TOLMAR, INC.-21PA032261

PATIENT
  Sex: Male

DRUGS (1)
  1. ELIGARD [Suspect]
     Active Substance: LEUPROLIDE ACETATE
     Indication: Prostate cancer
     Dosage: 45 MILLIGRAM, Q 6 MONTH
     Route: 058

REACTIONS (2)
  - Renal failure [Fatal]
  - Prostate cancer [Fatal]
